FAERS Safety Report 8963106 (Version 2)
Quarter: 2013Q1

REPORT INFORMATION
  Report Type: Spontaneous
  Country: US (occurrence: None)
  Receive Date: 20121127
  Receipt Date: 20121203
  Transmission Date: 20140127
  Serious: Yes (Hospitalization, Other)
  Sender: FDA-Public Use
  Company Number: 2012034002

PATIENT
  Age: 43 Year
  Sex: Male

DRUGS (3)
  1. IVIG [Suspect]
     Indication: GUILLAIN-BARRE SYNDROME
     Route: 042
  2. PHENYTOIN (PHENYTOIN) [Concomitant]
  3. UNSPECIFOED INGREDIENT [Suspect]

REACTIONS (12)
  - Off label use [None]
  - Ataxia [None]
  - Muscular weakness [None]
  - VIIth nerve paralysis [None]
  - Dysarthria [None]
  - Dysphagia [None]
  - Tachycardia [None]
  - Urinary retention [None]
  - Orthostatic hypotension [None]
  - Autonomic nervous system imbalance [None]
  - Drug ineffective [None]
  - Peripheral sensorimotor neuropathy [None]
